FAERS Safety Report 7677030-X (Version None)
Quarter: 2011Q3

REPORT INFORMATION
  Report Type: 
  Country: None (occurrence: None)
  Receive Date: 20110811
  Receipt Date: 20110802
  Transmission Date: 20111222
  Serious: Yes (Hospitalization)
  Sender: FDA-Public Use
  Company Number: US-ROCHE-784595

PATIENT
  Sex: Male
  Weight: 82.6 kg

DRUGS (2)
  1. BEVACIZUMAB [Suspect]
     Indication: GLIOBLASTOMA MULTIFORME
     Dosage: DAY ONE
     Route: 042
     Dates: start: 20110321, end: 20110404
  2. TEMOZOLOMIDE [Concomitant]
     Dates: start: 20110321, end: 20110401

REACTIONS (2)
  - HYDROCEPHALUS [None]
  - MENINGITIS [None]
